FAERS Safety Report 8089590-8 (Version None)
Quarter: 2012Q1

REPORT INFORMATION
  Report Type: 
  Country: None (occurrence: None)
  Receive Date: 20120128
  Receipt Date: 20110620
  Transmission Date: 20120608
  Serious: No
  Sender: FDA-Public Use
  Company Number: US-ABBOTT-11P-163-0726324-00

PATIENT
  Sex: Male
  Weight: 95.34 kg

DRUGS (8)
  1. PREDNISONE TAB [Concomitant]
     Indication: PRODUCT USED FOR UNKNOWN INDICATION
  2. NABUMETONE [Concomitant]
     Indication: RHEUMATOID ARTHRITIS
  3. HUMIRA [Suspect]
     Indication: RHEUMATOID ARTHRITIS
     Route: 058
     Dates: start: 20110331
  4. NAPROXEN (ALEVE) [Concomitant]
     Indication: PAIN
     Route: 048
  5. FLUTICASONE PROPIONATE [Concomitant]
     Indication: NASAL POLYPS
     Route: 055
  6. ALENDRONATE SODIUM [Concomitant]
     Indication: OSTEOPOROSIS
  7. LOMOTIL [Concomitant]
     Indication: DIARRHOEA
  8. GABAPENTIN [Concomitant]
     Indication: PRODUCT USED FOR UNKNOWN INDICATION

REACTIONS (1)
  - LUNG DISORDER [None]
